FAERS Safety Report 7114560-3 (Version None)
Quarter: 2010Q4

REPORT INFORMATION
  Report Type: 
  Country: None (occurrence: None)
  Receive Date: 20101120
  Receipt Date: 20101108
  Transmission Date: 20110411
  Serious: Yes (Hospitalization, Other)
  Sender: FDA-Public Use
  Company Number: DE-B.I. PHARMACEUTICALS,INC./RIDGEFIELD-2010-DE-05640DE

PATIENT
  Sex: Female

DRUGS (3)
  1. SIFROL 0,18 MG [Suspect]
     Route: 048
  2. AMITRIPTYLINE HCL [Suspect]
     Route: 048
  3. LYRICA [Suspect]
     Route: 048

REACTIONS (7)
  - ACCIDENTAL EXPOSURE [None]
  - CONFUSIONAL STATE [None]
  - DRY SKIN [None]
  - DYSKINESIA [None]
  - INCORRECT DOSE ADMINISTERED [None]
  - MEDICATION ERROR [None]
  - SOMNOLENCE [None]
